FAERS Safety Report 17195129 (Version 2)
Quarter: 2020Q1

REPORT INFORMATION
  Report Type: Spontaneous
  Country: ES (occurrence: ES)
  Receive Date: 20191224
  Receipt Date: 20200104
  Transmission Date: 20200409
  Serious: Yes (Life-Threatening, Hospitalization)
  Sender: FDA-Public Use
  Company Number: ES-TEVA-2019-ES-1156607

PATIENT
  Age: 15 Year
  Sex: Female

DRUGS (1)
  1. DOXORUBICIN [Suspect]
     Active Substance: DOXORUBICIN
     Indication: EPSTEIN-BARR VIRUS ASSOCIATED LYMPHOMA
     Dosage: TOTAL DOXORUBICIN CUMULATIVE DOSE OF 120 MG/ME2
     Route: 065
     Dates: start: 201607, end: 201701

REACTIONS (9)
  - Ventricular asystole [Recovering/Resolving]
  - Hepatomegaly [Recovering/Resolving]
  - Cardiotoxicity [Recovering/Resolving]
  - Right ventricular dysfunction [Recovering/Resolving]
  - Right ventricular failure [Recovering/Resolving]
  - Cardiac arrest [Recovering/Resolving]
  - Left ventricular dysfunction [Recovering/Resolving]
  - Tricuspid valve incompetence [Recovering/Resolving]
  - Bradycardia [Recovering/Resolving]

NARRATIVE: CASE EVENT DATE: 2016
